FAERS Safety Report 16381012 (Version 1)
Quarter: 2019Q2

REPORT INFORMATION
  Report Type: Spontaneous
  Country: GB (occurrence: GB)
  Receive Date: 20190602
  Receipt Date: 20190602
  Transmission Date: 20190711
  Serious: Yes (Other)
  Sender: FDA-Public Use
  Company Number: PHHY2019GB122079

PATIENT
  Age: 31 Year
  Sex: Female
  Weight: 86.6 kg

DRUGS (1)
  1. CO-AMOXICLAV [Suspect]
     Active Substance: AMOXICILLIN\CLAVULANATE POTASSIUM
     Indication: CHOLANGITIS
     Dosage: 3.6 G, QD
     Route: 042
     Dates: start: 20190223, end: 20190228

REACTIONS (2)
  - Jaundice cholestatic [Recovering/Resolving]
  - Condition aggravated [Recovering/Resolving]

NARRATIVE: CASE EVENT DATE: 20190227
